FAERS Safety Report 8287503-7 (Version None)
Quarter: 2012Q2

REPORT INFORMATION
  Report Type: 
  Country: None (occurrence: None)
  Receive Date: 20120416
  Receipt Date: 20120411
  Transmission Date: 20120825
  Serious: Yes (Other)
  Sender: FDA-Public Use
  Company Number: JP-BAYER-2012-035704

PATIENT
  Age: 68 Year
  Sex: Female
  Weight: 46 kg

DRUGS (14)
  1. SORAFENIB (RAF KINASE INHIBITOR) [Suspect]
     Indication: HEPATIC NEOPLASM MALIGNANT
     Dosage: 400 MG, QD
     Route: 048
     Dates: start: 20101111, end: 20101124
  2. PYDOXAL [Concomitant]
     Dosage: DAILY DOSE 60 MG
     Route: 048
     Dates: start: 20101111
  3. FLUOROURACIL [Concomitant]
     Dosage: UNK
     Route: 013
     Dates: start: 20110101, end: 20110101
  4. SORAFENIB (RAF KINASE INHIBITOR) [Suspect]
     Dosage: 200 MG, QD
     Route: 048
     Dates: start: 20120106
  5. SORAFENIB (RAF KINASE INHIBITOR) [Suspect]
     Dosage: 200 MG, QD
     Route: 048
     Dates: start: 20101209, end: 20110511
  6. CISPLATIN [Concomitant]
     Dosage: UNK
     Route: 013
     Dates: start: 20110101, end: 20110101
  7. OLMESARTAN MEDOXOMIL [Concomitant]
     Dosage: UNK
     Route: 048
  8. CODEINE PHOSPHATE [Concomitant]
     Dosage: DAILY DOSE 2 G
     Route: 048
     Dates: start: 20101111
  9. CISPLATIN [Concomitant]
     Dosage: UNK
     Route: 013
     Dates: start: 20111116, end: 20111116
  10. CISPLATIN [Concomitant]
     Dosage: UNK
     Route: 013
     Dates: start: 20111216, end: 20111216
  11. SORAFENIB (RAF KINASE INHIBITOR) [Suspect]
     Dosage: 300 MG, QD
     Route: 048
     Dates: start: 20110512, end: 20111121
  12. UREPEARL [Concomitant]
     Dosage: DAILY DOSE 2.8 G
     Route: 061
     Dates: start: 20101111
  13. FLUOROURACIL [Concomitant]
     Indication: REGIONAL CHEMOTHERAPY
     Dosage: UNK
     Route: 013
     Dates: start: 20111116, end: 20111116
  14. FLUOROURACIL [Concomitant]
     Dosage: UNK
     Route: 013
     Dates: start: 20111216, end: 20111216

REACTIONS (18)
  - RASH [None]
  - FATIGUE [None]
  - GASTRIC ULCER [None]
  - BACK PAIN [None]
  - PYREXIA [None]
  - ABDOMINAL PAIN UPPER [None]
  - ALOPECIA [None]
  - NAUSEA [None]
  - HAEMOGLOBIN DECREASED [None]
  - DIARRHOEA [None]
  - BLOOD PRESSURE DECREASED [None]
  - HEADACHE [None]
  - PALMAR-PLANTAR ERYTHRODYSAESTHESIA SYNDROME [None]
  - HYPERTENSION [None]
  - ARTHRALGIA [None]
  - VOMITING [None]
  - CONSTIPATION [None]
  - ASCITES [None]
